FAERS Safety Report 16857349 (Version 3)
Quarter: 2022Q3

REPORT INFORMATION
  Report Type: Report from Study
  Country: CA (occurrence: CA)
  Receive Date: 20190926
  Receipt Date: 20220913
  Transmission Date: 20221027
  Serious: Yes (Hospitalization)
  Sender: FDA-Public Use
  Company Number: CA-PFIZER INC-2019409873

PATIENT
  Age: 54 Year
  Sex: Female

DRUGS (21)
  1. CIPROFLOXACIN [Suspect]
     Active Substance: CIPROFLOXACIN
     Indication: Septic shock
     Dosage: UNK
     Route: 065
  2. COSENTYX [Suspect]
     Active Substance: SECUKINUMAB
     Indication: Psoriasis
     Dosage: 300 MG, MONTHLY
     Route: 058
  3. COSENTYX [Suspect]
     Active Substance: SECUKINUMAB
     Dosage: 300 MG, WEEKLY
     Route: 058
  4. COSENTYX [Suspect]
     Active Substance: SECUKINUMAB
     Dosage: 300 MG, MONTHLY
     Route: 058
  5. COSENTYX [Suspect]
     Active Substance: SECUKINUMAB
     Dosage: 300 MG, MONTHLY
     Route: 058
  6. COSENTYX [Suspect]
     Active Substance: SECUKINUMAB
     Indication: Psoriasis
     Dosage: 300 MG
     Route: 058
  7. COSENTYX [Suspect]
     Active Substance: SECUKINUMAB
     Dosage: 300 MG, 1 EVERY 1 WEEK
     Route: 058
  8. COSENTYX [Suspect]
     Active Substance: SECUKINUMAB
     Dosage: 300 MG, 1 EVERY 1 MONTH
     Route: 058
  9. COSENTYX [Suspect]
     Active Substance: SECUKINUMAB
     Dosage: 300 MG, 1 EVERY 1 MONTH
     Route: 058
  10. BEESWAX [Concomitant]
     Active Substance: YELLOW WAX
     Dosage: UNK
     Route: 065
  11. BETAMETHASONE DIPROPIONATE\CALCIPOTRIENE [Concomitant]
     Active Substance: BETAMETHASONE DIPROPIONATE\CALCIPOTRIENE
     Dosage: UNK
     Route: 065
  12. CLOBETASOL [Concomitant]
     Active Substance: CLOBETASOL
     Dosage: UNK
     Route: 065
  13. DOVONEX [Concomitant]
     Active Substance: CALCIPOTRIENE
     Dosage: UNK
     Route: 065
  14. ENBREL [Concomitant]
     Active Substance: ETANERCEPT
     Dosage: UNK
     Route: 065
  15. HUMIRA [Concomitant]
     Active Substance: ADALIMUMAB
     Dosage: UNK
     Route: 065
  16. INFLUENZA VIRUS VACCINE [Concomitant]
     Active Substance: INFLUENZA VIRUS VACCINE
     Dosage: UNK
     Route: 065
  17. PROTOPIC [Concomitant]
     Active Substance: TACROLIMUS
     Dosage: UNK
     Route: 065
  18. PSORALEN [Concomitant]
     Active Substance: PSORALEN
     Dosage: UNK
     Route: 065
  19. STELARA [Concomitant]
     Active Substance: USTEKINUMAB
     Dosage: UNK
     Route: 065
  20. CYCLOSPORINE [Concomitant]
     Active Substance: CYCLOSPORINE
     Dosage: UNK
     Route: 065
  21. METHOTREXATE [Concomitant]
     Active Substance: METHOTREXATE
     Dosage: UNK
     Route: 065

REACTIONS (16)
  - Paraesthesia [Unknown]
  - Pathogen resistance [Unknown]
  - Skin plaque [Unknown]
  - Swelling [Unknown]
  - Pruritus [Unknown]
  - Urticaria [Unknown]
  - Septic shock [Unknown]
  - Gallbladder rupture [Unknown]
  - Abscess [Unknown]
  - Pain of skin [Unknown]
  - Postoperative wound infection [Unknown]
  - Erythema [Unknown]
  - Induration [Unknown]
  - Off label use [Unknown]
  - Skin exfoliation [Unknown]
  - Therapeutic product effect decreased [Unknown]
